FAERS Safety Report 7769121-X (Version None)
Quarter: 2011Q3

REPORT INFORMATION
  Report Type: 
  Country: None (occurrence: None)
  Receive Date: 20110922
  Receipt Date: 20110415
  Transmission Date: 20111222
  Serious: Yes (Hospitalization)
  Sender: FDA-Public Use
  Company Number: US-ASTRAZENECA-2011SE21993

PATIENT
  Age: 46 Year
  Sex: Female

DRUGS (6)
  1. TRAZODONE HCL [Concomitant]
  2. SEROQUEL [Suspect]
     Indication: BIPOLAR DISORDER
     Route: 048
     Dates: start: 20070101
  3. SEROQUEL [Suspect]
     Route: 048
     Dates: start: 20090101
  4. XANAX [Concomitant]
  5. ZESTRIL [Concomitant]
  6. PAIN MEDICATION [Concomitant]

REACTIONS (1)
  - DIABETIC KETOACIDOSIS [None]
